FAERS Safety Report 16344614 (Version 1)
Quarter: 2019Q2

REPORT INFORMATION
  Report Type: Spontaneous
  Country: PL (occurrence: PL)
  Receive Date: 20190522
  Receipt Date: 20190522
  Transmission Date: 20190711
  Serious: Yes (Life-Threatening)
  Sender: FDA-Public Use
  Company Number: PHHY2019PL116989

PATIENT
  Age: 39 Year
  Sex: Male
  Weight: 77 kg

DRUGS (1)
  1. OXALIPLATIN. [Suspect]
     Active Substance: OXALIPLATIN
     Indication: COLON CANCER
     Dosage: 240 MG, QD
     Route: 042
     Dates: start: 20160801, end: 20160831

REACTIONS (7)
  - Face oedema [Unknown]
  - Conjunctival hyperaemia [Unknown]
  - Asthenia [Unknown]
  - Hyperhidrosis [Unknown]
  - Heart rate increased [Unknown]
  - Lip oedema [Unknown]
  - Blood pressure decreased [Unknown]

NARRATIVE: CASE EVENT DATE: 20160831
